FAERS Safety Report 23453009 (Version 1)
Quarter: 2024Q1

REPORT INFORMATION
  Report Type: Spontaneous
  Country: None (occurrence: FR)
  Receive Date: 20240129
  Receipt Date: 20240129
  Transmission Date: 20240410
  Serious: Yes (Life-Threatening)
  Sender: FDA-Public Use
  Company Number: FR-B.Braun Medical Inc.-2152245

PATIENT
  Age: 64 Year
  Sex: Female

DRUGS (16)
  1. ACETAMINOPHEN [Suspect]
     Active Substance: ACETAMINOPHEN
     Indication: Product used for unknown indication
  2. ATARAX [Suspect]
     Active Substance: HYDROXYZINE HYDROCHLORIDE
  3. BROMAZEPAM [Suspect]
     Active Substance: BROMAZEPAM
  4. MIRTAZAPINE [Suspect]
     Active Substance: MIRTAZAPINE
  5. PREGABALIN [Suspect]
     Active Substance: PREGABALIN
  6. CYAMEMAZINE [Suspect]
     Active Substance: CYAMEMAZINE
  7. ZOPICLONE [Suspect]
     Active Substance: ZOPICLONE
  8. ATORVASTATIN [Concomitant]
     Active Substance: ATORVASTATIN
  9. ESOMEPRAZOLE. [Concomitant]
     Active Substance: ESOMEPRAZOLE MAGNESIUM
  10. POLYETHYLENE GLYCOL 4000 [Concomitant]
     Active Substance: POLYETHYLENE GLYCOL 4000
  11. FOSFOMYCIN [Concomitant]
     Active Substance: FOSFOMYCIN
  12. KARDEGIC [Concomitant]
     Active Substance: ASPIRIN DL-LYSINE
  13. LEVOTHYROXINE [Concomitant]
     Active Substance: LEVOTHYROXINE\LEVOTHYROXINE SODIUM
  14. SERETIDE [Concomitant]
     Active Substance: FLUTICASONE PROPIONATE\SALMETEROL XINAFOATE
  15. SPIRIVA [Concomitant]
     Active Substance: TIOTROPIUM BROMIDE MONOHYDRATE
  16. ALBUTEROL [Concomitant]
     Active Substance: ALBUTEROL

REACTIONS (5)
  - Hypercapnia [None]
  - Urinary tract infection [None]
  - Drug interaction [None]
  - Chronic obstructive pulmonary disease [None]
  - Respiratory acidosis [None]
